FAERS Safety Report 23952810 (Version 1)
Quarter: 2024Q2

REPORT INFORMATION
  Report Type: Spontaneous
  Country: US (occurrence: None)
  Receive Date: 20240607
  Receipt Date: 20240607
  Transmission Date: 20240716
  Serious: Yes (Hospitalization)
  Sender: FDA-Public Use
  Company Number: None

PATIENT
  Age: 74 Year
  Sex: Female
  Weight: 65.25 kg

DRUGS (2)
  1. SEMAGLUTIDE [Suspect]
     Active Substance: SEMAGLUTIDE
     Indication: Weight decreased
     Dates: end: 20240524
  2. multiple prescriptions [Concomitant]

REACTIONS (5)
  - Loss of consciousness [None]
  - Seizure [None]
  - Respiratory arrest [None]
  - Heat stroke [None]
  - Counterfeit product administered [None]

NARRATIVE: CASE EVENT DATE: 20240529
